FAERS Safety Report 15302174 (Version 1)
Quarter: 2018Q3

REPORT INFORMATION
  Report Type: Spontaneous
  Country: US (occurrence: US)
  Receive Date: 20180821
  Receipt Date: 20180821
  Transmission Date: 20181010
  Serious: No
  Sender: FDA-Public Use
  Company Number: US-TARO-2018TAR00295

PATIENT
  Age: 75 Year
  Sex: Female

DRUGS (3)
  1. UNSPECIFIED OTHER MEDICATIONS [Concomitant]
     Active Substance: UNSPECIFIED INGREDIENT
  2. WARFARIN SODIUM TABLETS USP 2.5MG [Suspect]
     Active Substance: WARFARIN SODIUM
     Dosage: 1.25 MG, 2X/WEEK (SATURDAY AND SUNDAY)
     Route: 048
     Dates: start: 201709, end: 201804
  3. WARFARIN SODIUM TABLETS USP 2.5MG [Suspect]
     Active Substance: WARFARIN SODIUM
     Dosage: 2.5 MG, 5X/WEEK (MONDAY THROUGH FRIDAY)
     Route: 048
     Dates: start: 201709, end: 201804

REACTIONS (2)
  - Oropharyngeal pain [Unknown]
  - Foreign body in respiratory tract [Recovered/Resolved]

NARRATIVE: CASE EVENT DATE: 201803
